FAERS Safety Report 11517649 (Version 2)
Quarter: 2015Q3

REPORT INFORMATION
  Report Type: Spontaneous
  Country: BR (occurrence: BR)
  Receive Date: 20150917
  Receipt Date: 20150925
  Transmission Date: 20151125
  Serious: Yes (Death, Hospitalization, Other)
  Sender: FDA-Public Use
  Company Number: BR-PFIZER INC-2015289875

PATIENT
  Age: 68 Year
  Sex: Male

DRUGS (1)
  1. SUTENT [Suspect]
     Active Substance: SUNITINIB MALATE
     Indication: METASTATIC RENAL CELL CARCINOMA
     Dosage: 50 MG, CYCLE 4X2, 1X/DAY
     Route: 048
     Dates: start: 20150826

REACTIONS (6)
  - Disease progression [Fatal]
  - Respiratory failure [Unknown]
  - Gastrointestinal haemorrhage [Unknown]
  - Cardiac arrest [Fatal]
  - Metastatic renal cell carcinoma [Fatal]
  - Aspiration [Unknown]

NARRATIVE: CASE EVENT DATE: 201508
